FAERS Safety Report 17816863 (Version 1)
Quarter: 2020Q2

REPORT INFORMATION
  Report Type: Spontaneous
  Country: CN (occurrence: CN)
  Receive Date: 20200522
  Receipt Date: 20200522
  Transmission Date: 20200714
  Serious: Yes (Hospitalization)
  Sender: FDA-Public Use
  Company Number: CN-BAYER-2020-091091

PATIENT
  Age: 65 Year
  Sex: Male

DRUGS (3)
  1. JIN YE BAI DU KE LI [Concomitant]
     Indication: VIRAL INFECTION
     Dosage: 1 DF, TID
     Route: 048
     Dates: start: 20200121, end: 20200129
  2. OSELTAMIVIR [Concomitant]
     Active Substance: OSELTAMIVIR
     Indication: VIRAL INFECTION
     Dosage: 0.2 G, TID
     Route: 048
     Dates: start: 20200121, end: 20200129
  3. AVELOX [Suspect]
     Active Substance: MOXIFLOXACIN HYDROCHLORIDE
     Indication: PNEUMONIA
     Dosage: 0.4 G, QD
     Route: 048
     Dates: start: 20200121, end: 20200129

REACTIONS (4)
  - Diarrhoea [None]
  - Cough [None]
  - Diarrhoea [None]
  - Wheezing [None]

NARRATIVE: CASE EVENT DATE: 20200129
